FAERS Safety Report 5417527-6 (Version None)
Quarter: 2007Q3

REPORT INFORMATION
  Report Type: 
  Country: None (occurrence: None)
  Receive Date: 20070816
  Receipt Date: 20070809
  Transmission Date: 20080115
  Serious: Yes (Congenital Anomaly)
  Sender: FDA-Public Use
  Company Number: GB-MERCK-0708GBR00043

PATIENT
  Sex: Male

DRUGS (6)
  1. CRIXIVAN [Suspect]
     Route: 065
     Dates: start: 20040601, end: 20040720
  2. COMBIVIR [Suspect]
     Route: 065
     Dates: start: 20040130, end: 20040601
  3. KALETRA [Suspect]
     Route: 065
     Dates: start: 20040601
  4. NELFINAVIR MESYLATE [Suspect]
     Route: 065
     Dates: start: 20040130, end: 20040601
  5. TRUVADA [Suspect]
     Route: 065
     Dates: start: 20040601, end: 20040720
  6. VIREAD [Suspect]
     Route: 065
     Dates: start: 20040601

REACTIONS (6)
  - ABDOMINAL DISTENSION [None]
  - CARDIAC MURMUR [None]
  - CONGENITAL ABDOMINAL HERNIA [None]
  - CONGENITAL ANOMALY [None]
  - CRYPTORCHISM [None]
  - DRUG EXPOSURE DURING PREGNANCY [None]
